FAERS Safety Report 5830244-3 (Version None)
Quarter: 2008Q3

REPORT INFORMATION
  Report Type: 
  Country: None (occurrence: None)
  Receive Date: 20080801
  Receipt Date: 20080725
  Transmission Date: 20090109
  Serious: Yes (Life-Threatening)
  Sender: FDA-Public Use
  Company Number: B0530655A

PATIENT
  Age: 64 Year
  Sex: Male

DRUGS (3)
  1. PAROXETINE HCL [Suspect]
     Indication: DEPRESSED MOOD
     Route: 048
  2. ARIPIPRAZOLE [Suspect]
     Route: 048
  3. RISPERIDONE [Concomitant]
     Route: 048

REACTIONS (3)
  - DRUG INTERACTION [None]
  - EUPHORIC MOOD [None]
  - RHABDOMYOLYSIS [None]
